FAERS Safety Report 19004951 (Version 1)
Quarter: 2021Q1

REPORT INFORMATION
  Report Type: Spontaneous
  Country: US (occurrence: US)
  Receive Date: 20210313
  Receipt Date: 20210313
  Transmission Date: 20210420
  Serious: No
  Sender: FDA-Public Use
  Company Number: US-NOVITIUMPHARMA-2021USNVP00024

PATIENT
  Age: 68 Year
  Sex: Female

DRUGS (1)
  1. DIAZOXIDE ORAL SUSPENSION USP, 50 MG/ML [Suspect]
     Active Substance: DIAZOXIDE
     Indication: HYPOGLYCAEMIA
     Route: 048
     Dates: start: 20210226

REACTIONS (5)
  - Feeling abnormal [Unknown]
  - Nausea [Unknown]
  - Abdominal discomfort [Unknown]
  - Drug ineffective [Unknown]
  - Blood pressure increased [Unknown]
